FAERS Safety Report 9537995 (Version 3)
Quarter: 2013Q3

REPORT INFORMATION
  Report Type: Report from Study
  Country: DE (occurrence: DE)
  Receive Date: 20130919
  Receipt Date: 20130928
  Transmission Date: 20140515
  Serious: Yes (Hospitalization)
  Sender: FDA-Public Use
  Company Number: DE-ROCHE-530750

PATIENT
  Age: 67 Year
  Sex: Male
  Weight: 65 kg

DRUGS (9)
  1. PEG-INTERFERON ALFA 2A [Suspect]
     Indication: MALIGNANT MELANOMA
     Route: 058
     Dates: start: 20051017
  2. PANTOPRAZOLE [Concomitant]
     Dosage: TAKEN IN THE MORNING AND IN THE EVENING.
     Route: 065
  3. FORTECORTIN [Concomitant]
     Route: 065
  4. VALPROAT [Concomitant]
     Dosage: REPORTED AS VALPROAT LONG R. TAKEN IN THE MORNING AND IN THE EVENING.
     Route: 065
  5. BELOC-ZOK MITE [Concomitant]
     Dosage: TAKEN IN THE MORNING.
     Route: 065
  6. BELOC-ZOK MITE [Concomitant]
     Dosage: TAKEN IN THE MORNING AND IN THE EVENING.
     Route: 065
  7. LOCOL [Concomitant]
     Dosage: TAKEN IN THE EVENING.
     Route: 065
  8. BIFITERAL [Concomitant]
     Dosage: TAKEN IN THE MORNING AND IN THE EVENING.
     Route: 065
  9. FRAGMIN P [Concomitant]
     Dosage: DOSING AMOUNT  2000U/0.2 SEC TAKEN IN THE MORNING.
     Route: 065

REACTIONS (2)
  - Craniocerebral injury [Recovered/Resolved with Sequelae]
  - Syncope [Recovered/Resolved]
